FAERS Safety Report 9374656 (Version 1)
Quarter: 2013Q2

REPORT INFORMATION
  Report Type: Spontaneous
  Country: US (occurrence: US)
  Receive Date: 20130628
  Receipt Date: 20130628
  Transmission Date: 20140414
  Serious: Yes (Other)
  Sender: FDA-Public Use
  Company Number: US-PFIZER INC-2013189426

PATIENT
  Sex: Female
  Weight: 61.2 kg

DRUGS (3)
  1. PREMARIN [Suspect]
     Indication: HORMONE REPLACEMENT THERAPY
     Dosage: UNK, 1X/DAY
  2. KLOR-CON [Concomitant]
     Dosage: UNK, 3X/DAY
  3. NEURONTIN [Concomitant]
     Dosage: 400 MG, 3X/DAY

REACTIONS (2)
  - Renal neoplasm [Unknown]
  - Oral fungal infection [Unknown]
